FAERS Safety Report 5313790-0 (Version None)
Quarter: 2007Q2

REPORT INFORMATION
  Report Type: 
  Country: None (occurrence: None)
  Receive Date: 20070501
  Receipt Date: 20070416
  Transmission Date: 20071010
  Serious: Yes (Death)
  Sender: FDA-Public Use
  Company Number: GB-GENENTECH-240550

PATIENT
  Age: 56 Year
  Sex: Female

DRUGS (2)
  1. HERCEPTIN [Suspect]
     Indication: BREAST CANCER METASTATIC
     Dosage: UNK, 1/WEEK
  2. TAXOL [Suspect]
     Indication: BREAST CANCER METASTATIC
     Dosage: UNK, 1/WEEK

REACTIONS (1)
  - PULMONARY EMBOLISM [None]
